FAERS Safety Report 9992307 (Version 2)
Quarter: 2014Q1

REPORT INFORMATION
  Report Type: Spontaneous
  Country: US (occurrence: US)
  Receive Date: 20140310
  Receipt Date: 20140310
  Transmission Date: 20141002
  Serious: Yes (Death)
  Sender: FDA-Public Use
  Company Number: US-GE HEALTHCARE MEDICAL DIAGNOSTICS-OSCN-PR-0901S-0018

PATIENT
  Age: 60 Year
  Sex: Male

DRUGS (11)
  1. OMNISCAN [Suspect]
     Indication: PYREXIA
     Route: 042
     Dates: start: 20051208, end: 20051208
  2. OMNISCAN [Suspect]
     Indication: DIABETIC FOOT
     Route: 042
     Dates: start: 20070304, end: 20070304
  3. GADOLINIUM (UNSPECIFIED) [Suspect]
     Indication: CELLULITIS
     Route: 042
     Dates: start: 20060725, end: 20060725
  4. GADOLINIUM (UNSPECIFIED) [Suspect]
     Indication: PRODUCT USED FOR UNKNOWN INDICATION
     Route: 042
     Dates: start: 20051208, end: 20051208
  5. GADOLINIUM (UNSPECIFIED) [Suspect]
     Route: 042
     Dates: start: 20051223, end: 20051223
  6. GADOLINIUM (UNSPECIFIED) [Suspect]
     Route: 042
     Dates: start: 20060329, end: 20060329
  7. GADOLINIUM (UNSPECIFIED) [Suspect]
     Route: 042
     Dates: start: 20060725, end: 20060725
  8. GADOLINIUM (UNSPECIFIED) [Suspect]
     Route: 042
     Dates: start: 20060726, end: 20060726
  9. GADOLINIUM (UNSPECIFIED) [Suspect]
     Route: 042
     Dates: start: 20070524, end: 20070524
  10. MAGNEVIST [Suspect]
     Indication: PAIN
     Route: 042
     Dates: start: 20060307, end: 20060307
  11. MAGNEVIST [Suspect]
     Indication: SWELLING
     Route: 042
     Dates: start: 20060329, end: 20060329

REACTIONS (1)
  - Nephrogenic systemic fibrosis [Fatal]
